FAERS Safety Report 24052915 (Version 1)
Quarter: 2024Q3

REPORT INFORMATION
  Report Type: Spontaneous
  Country: ES (occurrence: ES)
  Receive Date: 20240705
  Receipt Date: 20240705
  Transmission Date: 20241016
  Serious: Yes (Hospitalization, Other)
  Sender: EMD SERONO INC
  Company Number: ES-Merck Healthcare KGaA-2024031402

PATIENT
  Age: 51 Year
  Sex: Male
  Weight: 90 kg

DRUGS (8)
  1. EUTHYROX [Interacting]
     Active Substance: LEVOTHYROXINE SODIUM
     Indication: Autoimmune thyroiditis
     Dosage: IN THE MORNING
  2. EUTHYROX [Interacting]
     Active Substance: LEVOTHYROXINE SODIUM
  3. EUTHYROX [Interacting]
     Active Substance: LEVOTHYROXINE SODIUM
     Dosage: 137 UG PLUS 25 UG
  4. EUTHYROX [Interacting]
     Active Substance: LEVOTHYROXINE SODIUM
  5. BRINTELLIX [Interacting]
     Active Substance: VORTIOXETINE HYDROBROMIDE
     Indication: Product used for unknown indication
  6. BRINTELLIX [Interacting]
     Active Substance: VORTIOXETINE HYDROBROMIDE
  7. BRINTELLIX [Interacting]
     Active Substance: VORTIOXETINE HYDROBROMIDE
  8. MAGNESIUM [Interacting]
     Active Substance: MAGNESIUM
     Indication: Prophylaxis
     Dosage: AT NIGHT

REACTIONS (15)
  - Aortic aneurysm [Unknown]
  - COVID-19 [Unknown]
  - Palpitations [Unknown]
  - Blood pressure abnormal [Unknown]
  - Fibrin D dimer increased [Unknown]
  - Vitamin D decreased [Unknown]
  - Blood thyroid stimulating hormone increased [Not Recovered/Not Resolved]
  - Thyroxine free decreased [Unknown]
  - Somnolence [Unknown]
  - Depression [Unknown]
  - Emotional distress [Unknown]
  - Anti-thyroid antibody increased [Unknown]
  - Hyperthyroidism [Unknown]
  - Drug interaction [Not Recovered/Not Resolved]
  - Off label use [Unknown]

NARRATIVE: CASE EVENT DATE: 20130101
